FAERS Safety Report 19861079 (Version 2)
Quarter: 2021Q4

REPORT INFORMATION
  Report Type: Spontaneous
  Country: BR (occurrence: BR)
  Receive Date: 20210921
  Receipt Date: 20211111
  Transmission Date: 20220303
  Serious: Yes (Other)
  Sender: FDA-Public Use
  Company Number: BR-NOVARTISPH-NVSC2021BR212824

PATIENT
  Sex: Female

DRUGS (3)
  1. ESTRADIOL [Suspect]
     Active Substance: ESTRADIOL
     Indication: Product used for unknown indication
     Dosage: 100 UG
     Route: 065
     Dates: start: 201909
  2. ESTRADIOL [Suspect]
     Active Substance: ESTRADIOL
     Dosage: 50 UG (TWO OF 25 UG (1 MONTH AGO))
     Route: 065
     Dates: start: 2021, end: 2021
  3. ESTRADIOL [Suspect]
     Active Substance: ESTRADIOL
     Dosage: 50 UG
     Route: 065

REACTIONS (6)
  - Cerebrovascular accident [Recovered/Resolved]
  - Pancreatitis [Recovered/Resolved]
  - COVID-19 [Recovered/Resolved]
  - Fall [Recovered/Resolved]
  - Wrong technique in product usage process [Unknown]
  - Drug ineffective [Unknown]

NARRATIVE: CASE EVENT DATE: 20190901
